FAERS Safety Report 6124751-6 (Version None)
Quarter: 2009Q1

REPORT INFORMATION
  Report Type: 
  Country: None (occurrence: None)
  Receive Date: 20090319
  Receipt Date: 20090318
  Transmission Date: 20090719
  Serious: Yes (Other)
  Sender: FDA-Public Use
  Company Number: FR-RB-012079-09

PATIENT
  Sex: Male

DRUGS (1)
  1. SUBUTEX [Suspect]
     Route: 065

REACTIONS (1)
  - SUICIDAL IDEATION [None]
